FAERS Safety Report 7642439-7 (Version None)
Quarter: 2011Q3

REPORT INFORMATION
  Report Type: 
  Country: None (occurrence: None)
  Receive Date: 20110728
  Receipt Date: 20110121
  Transmission Date: 20111222
  Serious: No
  Sender: FDA-Public Use
  Company Number: US-MYLANLABS-2011S1001517

PATIENT
  Age: 96 Year
  Sex: Female
  Weight: 73.94 kg

DRUGS (5)
  1. LEVOTHYROXINE SODIUM [Suspect]
     Route: 048
     Dates: start: 20100917
  2. ASPIRIN [Concomitant]
  3. LEVOTHYROXINE SODIUM [Suspect]
     Indication: HYPOTHYROIDISM
     Route: 048
     Dates: start: 20100101, end: 20100916
  4. TYLENOL-500 [Concomitant]
  5. COLACE [Concomitant]

REACTIONS (10)
  - RESPIRATORY RATE INCREASED [None]
  - CONFUSIONAL STATE [None]
  - FLUSHING [None]
  - HYPERHIDROSIS [None]
  - ANXIETY [None]
  - NASOPHARYNGITIS [None]
  - HEART RATE INCREASED [None]
  - TREMOR [None]
  - FATIGUE [None]
  - DYSPNOEA [None]
